FAERS Safety Report 10195771 (Version 1)
Quarter: 2014Q2

REPORT INFORMATION
  Report Type: Spontaneous
  Country: US (occurrence: None)
  Receive Date: 20140522
  Receipt Date: 20140522
  Transmission Date: 20141212
  Serious: Yes (Other)
  Sender: FDA-Public Use
  Company Number: SYM-2014-21083

PATIENT
  Age: 70 Year
  Sex: Female
  Weight: 54.87 kg

DRUGS (2)
  1. ATIVAN (LORAZEPAM) [Suspect]
     Indication: NAUSEA
  2. XYREM [Suspect]
     Indication: HYPERSOMNIA
     Route: 048
     Dates: start: 200612, end: 2007

REACTIONS (7)
  - Liposarcoma [None]
  - Nausea [None]
  - Confusional state [None]
  - Dehydration [None]
  - Hallucination [None]
  - Memory impairment [None]
  - Speech disorder [None]
